FAERS Safety Report 9395588 (Version 1)
Quarter: 2013Q3

REPORT INFORMATION
  Report Type: Spontaneous
  Country: AU (occurrence: None)
  Receive Date: 20130705
  Receipt Date: 20130705
  Transmission Date: 20140515
  Serious: Yes (Life-Threatening)
  Sender: FDA-Public Use
  Company Number: 2013P1010840

PATIENT
  Sex: 0

DRUGS (1)
  1. VECURONIUM [Suspect]
     Indication: NEUROMUSCULAR BLOCKADE

REACTIONS (1)
  - Anaphylactic reaction [None]
